FAERS Safety Report 20101813 (Version 1)
Quarter: 2021Q4

REPORT INFORMATION
  Report Type: Spontaneous
  Country: PT (occurrence: PT)
  Receive Date: 20211123
  Receipt Date: 20211123
  Transmission Date: 20220303
  Serious: Yes (Other)
  Sender: FDA-Public Use
  Company Number: PT-MYLANLABS-2021M1086664

PATIENT
  Age: 4 Year
  Sex: Female

DRUGS (7)
  1. ITRACONAZOLE [Suspect]
     Active Substance: ITRACONAZOLE
     Indication: Mucocutaneous candidiasis
     Dosage: 5 MILLIGRAM/KILOGRAM, QD
     Route: 048
  2. ITRACONAZOLE [Suspect]
     Active Substance: ITRACONAZOLE
     Dosage: 5 MILLIGRAM/KILOGRAM, QD
     Route: 048
  3. IMIQUIMOD [Suspect]
     Active Substance: IMIQUIMOD
     Indication: Mucocutaneous candidiasis
     Dosage: UNK, BIWEEKLY, (RECEIVED ONE SACHET PER WEEK)
     Route: 061
  4. TERBINAFINE [Suspect]
     Active Substance: TERBINAFINE
     Indication: Mucocutaneous candidiasis
     Dosage: RECEIVED 20MG/G, QD
     Route: 061
  5. KETOCONAZOLE [Suspect]
     Active Substance: KETOCONAZOLE
     Indication: Mucocutaneous candidiasis
     Dosage: RECEIVED 20MG/G, QD
     Route: 061
  6. FLUCONAZOLE [Concomitant]
     Active Substance: FLUCONAZOLE
     Indication: Mucocutaneous candidiasis
     Dosage: 4 MILLIGRAM/KILOGRAM, QD
     Route: 065
  7. CICLOPIROX [Concomitant]
     Active Substance: CICLOPIROX
     Indication: Mucocutaneous candidiasis
     Dosage: UNK
     Route: 065

REACTIONS (2)
  - Hepatotoxicity [Unknown]
  - Skin lesion [Recovering/Resolving]
